FAERS Safety Report 5208964-3 (Version None)
Quarter: 2007Q1

REPORT INFORMATION
  Report Type: 
  Country: None (occurrence: None)
  Receive Date: 20070116
  Receipt Date: 20070105
  Transmission Date: 20070707
  Serious: Yes (Other)
  Sender: FDA-Public Use
  Company Number: JP-AVENTIS-200613905JP

PATIENT
  Age: 65 Year
  Sex: Female

DRUGS (4)
  1. LASIX [Suspect]
     Route: 048
     Dates: end: 20061214
  2. BI SIFROL [Suspect]
     Dates: start: 20061208, end: 20061214
  3. GRAMALIL [Concomitant]
  4. LUPRAC [Concomitant]

REACTIONS (2)
  - PEMPHIGOID [None]
  - STEVENS-JOHNSON SYNDROME [None]
